FAERS Safety Report 9701150 (Version 1)
Quarter: 2013Q4

REPORT INFORMATION
  Report Type: Spontaneous
  Country: US (occurrence: US)
  Receive Date: 20131121
  Receipt Date: 20131121
  Transmission Date: 20140711
  Serious: No
  Sender: FDA-Public Use
  Company Number: US-GILEAD-2008-0015834

PATIENT
  Age: 67 Year
  Sex: Male
  Weight: 113.4 kg

DRUGS (10)
  1. LETAIRIS [Suspect]
     Indication: PULMONARY ARTERIAL HYPERTENSION
     Route: 048
     Dates: start: 20080222
  2. LASIX [Concomitant]
     Route: 048
  3. LISINOPRIL [Concomitant]
     Route: 048
  4. ATACAND [Concomitant]
     Route: 048
  5. ATENOLOL [Concomitant]
     Route: 048
  6. NORVASC [Concomitant]
     Route: 048
  7. TRICOR [Concomitant]
     Route: 048
  8. METFORMIN [Concomitant]
     Route: 048
  9. AVANDIA [Concomitant]
     Route: 048
  10. GLYBURIDE [Concomitant]
     Route: 048

REACTIONS (1)
  - Oedema peripheral [Not Recovered/Not Resolved]
